FAERS Safety Report 6196366-5 (Version None)
Quarter: 2009Q2

REPORT INFORMATION
  Report Type: 
  Country: None (occurrence: None)
  Receive Date: 20090520
  Receipt Date: 20090513
  Transmission Date: 20091009
  Serious: Yes (Disabling)
  Sender: FDA-Public Use
  Company Number: US-ASTRAZENECA-2009UW12609

PATIENT
  Age: 62 Year
  Sex: Female

DRUGS (1)
  1. CRESTOR [Suspect]
     Dosage: EVERY MONDAY, WEDNESDAY, FRIDAY
     Route: 048

REACTIONS (3)
  - ABASIA [None]
  - BLOOD CREATINE PHOSPHOKINASE INCREASED [None]
  - GUILLAIN-BARRE SYNDROME [None]
